FAERS Safety Report 11966735 (Version 3)
Quarter: 2016Q2

REPORT INFORMATION
  Report Type: Spontaneous
  Country: US (occurrence: US)
  Receive Date: 20160127
  Receipt Date: 20160513
  Transmission Date: 20160815
  Serious: No
  Sender: FDA-Public Use
  Company Number: US-PFIZER INC-2016042891

PATIENT
  Age: 64 Year
  Sex: Male
  Weight: 128.37 kg

DRUGS (4)
  1. LYRICA [Suspect]
     Active Substance: PREGABALIN
     Dosage: 150 MG, 3X/DAY
  2. LYRICA [Suspect]
     Active Substance: PREGABALIN
     Dosage: 100 MG, 3X/DAY, ONE AT MORNING, ONE AT NOON AND ONE AT BED TIME
  3. LYRICA [Suspect]
     Active Substance: PREGABALIN
     Indication: DIABETIC NEUROPATHY
     Dosage: 100 MG, 2X/DAY, ONE IN MORNING AND ONE AT BED TIME
     Dates: start: 201410
  4. LYRICA [Suspect]
     Active Substance: PREGABALIN
     Dosage: 150 MG, 4X/DAY
     Route: 048

REACTIONS (6)
  - Condition aggravated [Unknown]
  - Pain [Unknown]
  - Pain in extremity [Unknown]
  - Drug ineffective [Unknown]
  - Burning sensation [Unknown]
  - Insomnia [Unknown]
